FAERS Safety Report 4594870-4 (Version None)
Quarter: 2005Q1

REPORT INFORMATION
  Report Type: 
  Country: None (occurrence: None)
  Receive Date: 20050223
  Receipt Date: 20050202
  Transmission Date: 20050727
  Serious: Yes (Other)
  Sender: FDA-Public Use
  Company Number: B0369832A

PATIENT

DRUGS (2)
  1. VINORELBINE TARTRATE [Suspect]
     Dosage: 30 MG/M2/CONTINUOUS/
  2. CISPLATIN [Suspect]
     Dosage: 80 MG/M2/CONTINUOUS; INTRAVENOUS
     Route: 042

REACTIONS (1)
  - RENAL FAILURE ACUTE [None]
